FAERS Safety Report 8313346-1 (Version None)
Quarter: 2012Q2

REPORT INFORMATION
  Report Type: 
  Country: None (occurrence: None)
  Receive Date: 20120426
  Receipt Date: 20120417
  Transmission Date: 20120825
  Serious: Yes (Other)
  Sender: FDA-Public Use
  Company Number: PHEH2012US008344

PATIENT
  Sex: Female

DRUGS (11)
  1. DULERA [Concomitant]
     Dates: start: 20120213
  2. ALLEGRA [Concomitant]
     Dosage: 130 MG, DAILY
     Dates: start: 20120213
  3. GLEEVEC [Suspect]
     Indication: CHRONIC MYELOID LEUKAEMIA
     Dosage: 400 MG, QD
     Route: 048
     Dates: start: 20120214, end: 20120416
  4. ALBUTEROL [Concomitant]
     Dosage: 90 MG, PRN
     Dates: start: 20120213
  5. BENADRYL [Concomitant]
     Dosage: 25 MG, PRN
     Dates: start: 20120213
  6. LEXAPRO [Concomitant]
     Dosage: 10 MG, UNK
     Dates: start: 20120213
  7. DIOVAN [Concomitant]
     Dosage: 80 MG, UNK
  8. IBUPROFEN [Concomitant]
     Dates: start: 20120213
  9. DULERA [Concomitant]
     Dates: start: 20120213
  10. RANITIDINE [Concomitant]
     Dosage: 75 MG, UNK
     Dates: start: 20120213
  11. ALBUTEROL [Concomitant]
     Dates: start: 20120213

REACTIONS (3)
  - DRUG INEFFECTIVE [None]
  - RENAL FAILURE CHRONIC [None]
  - OEDEMA [None]
